FAERS Safety Report 6307440-4 (Version None)
Quarter: 2009Q3

REPORT INFORMATION
  Report Type: 
  Country: None (occurrence: None)
  Receive Date: 20090813
  Receipt Date: 20090605
  Transmission Date: 20100115
  Serious: No
  Sender: FDA-Public Use
  Company Number: US-BRISTOL-MYERS SQUIBB COMPANY-14652531

PATIENT
  Age: 95 Year
  Sex: Female

DRUGS (2)
  1. IXEMPRA KIT [Suspect]
     Dosage: 1DF: 1DOSE
  2. FASLODEX [Concomitant]

REACTIONS (2)
  - ERYTHEMA [None]
  - PRURITUS [None]
